FAERS Safety Report 8267573-2 (Version None)
Quarter: 2012Q2

REPORT INFORMATION
  Report Type: 
  Country: None (occurrence: None)
  Receive Date: 20120409
  Receipt Date: 20120404
  Transmission Date: 20120825
  Serious: Yes (Life-Threatening, Hospitalization)
  Sender: FDA-Public Use
  Company Number: PHHY2012FR028794

PATIENT
  Sex: Female

DRUGS (6)
  1. XALATAN [Concomitant]
     Dosage: UNK
  2. ASPIRIN [Suspect]
     Indication: MYOCARDIAL ISCHAEMIA
     Dosage: UNK
     Dates: start: 20120201
  3. PREVISCAN [Suspect]
     Indication: MYOCARDIAL ISCHAEMIA
     Dosage: UNK
     Dates: start: 20050101, end: 20120201
  4. ALPHAGAN [Concomitant]
     Dosage: UNK
  5. VOLTAREN [Suspect]
     Indication: TORTICOLLIS
     Dosage: UNK
     Route: 030
     Dates: start: 20120213, end: 20120214
  6. DESLORATADINE [Concomitant]
     Dosage: UNK

REACTIONS (9)
  - HAEMOGLOBIN DECREASED [None]
  - HAEMARTHROSIS [None]
  - INTERNATIONAL NORMALISED RATIO INCREASED [None]
  - LOSS OF CONSCIOUSNESS [None]
  - MALAISE [None]
  - CONFUSIONAL STATE [None]
  - BRADYCARDIA [None]
  - HYPOTENSION [None]
  - THINKING ABNORMAL [None]
